FAERS Safety Report 4281120-1 (Version None)
Quarter: 2004Q1

REPORT INFORMATION
  Report Type: 
  Country: None (occurrence: None)
  Receive Date: 20040107
  Receipt Date: 20030421
  Transmission Date: 20041129
  Serious: Yes (Other)
  Sender: FDA-Public Use
  Company Number: 2003008154

PATIENT
  Sex: Female
  Weight: 68.0396 kg

DRUGS (1)
  1. PENICILLIN G PROCAINE [Suspect]
     Indication: ILL-DEFINED DISORDER
     Dates: start: 19830101

REACTIONS (4)
  - ANAPHYLACTIC REACTION [None]
  - DYSPNOEA [None]
  - RASH [None]
  - URTICARIA [None]
